FAERS Safety Report 13459923 (Version 1)
Quarter: 2017Q2

REPORT INFORMATION
  Report Type: Spontaneous
  Country: US (occurrence: US)
  Receive Date: 20170420
  Receipt Date: 20170420
  Transmission Date: 20170830
  Serious: No
  Sender: FDA-Public Use
  Company Number: US-BEH-2017079684

PATIENT
  Sex: Female
  Weight: 77.98 kg

DRUGS (21)
  1. BACTRIM [Concomitant]
     Active Substance: SULFAMETHOXAZOLE\TRIMETHOPRIM
     Route: 065
  2. DIPHENHYDRAMINE. [Concomitant]
     Active Substance: DIPHENHYDRAMINE
     Route: 065
  3. ALBUTEROL                          /00139501/ [Concomitant]
     Active Substance: ALBUTEROL
     Route: 065
  4. KEFLEX [Concomitant]
     Active Substance: CEPHALEXIN
     Route: 065
  5. JUNEL FE 1/20 [Concomitant]
     Active Substance: ETHINYL ESTRADIOL\NORETHINDRONE ACETATE
     Route: 065
  6. CONCERTA [Concomitant]
     Active Substance: METHYLPHENIDATE HYDROCHLORIDE
     Route: 065
  7. IMITREX [Concomitant]
     Active Substance: SUMATRIPTAN SUCCINATE
     Route: 065
  8. LIDOCAINE W/PRILOCAINE [Concomitant]
     Route: 065
  9. TOPAMAX [Concomitant]
     Active Substance: TOPIRAMATE
     Route: 065
  10. CLARINEX                           /01202601/ [Concomitant]
     Active Substance: LORATADINE\PSEUDOEPHEDRINE SULFATE
     Route: 065
  11. EPIPEN [Concomitant]
     Active Substance: EPINEPHRINE
     Route: 065
  12. IBUPROFEN. [Concomitant]
     Active Substance: IBUPROFEN
     Route: 065
  13. HIZENTRA [Suspect]
     Active Substance: HUMAN IMMUNOGLOBULIN G
     Indication: IMMUNODEFICIENCY COMMON VARIABLE
     Dosage: 8 G, QW
     Route: 058
     Dates: start: 20131211
  14. LMX                                /00033401/ [Concomitant]
     Route: 065
  15. BIAXIN [Concomitant]
     Active Substance: CLARITHROMYCIN
     Route: 065
  16. TYLENOL [Concomitant]
     Active Substance: ACETAMINOPHEN
     Route: 065
  17. ADVAIR HFA [Concomitant]
     Active Substance: FLUTICASONE PROPIONATE\SALMETEROL XINAFOATE
     Route: 065
  18. HYDROXYZINE [Concomitant]
     Active Substance: HYDROXYZINE HYDROCHLORIDE
     Route: 065
  19. LOESTRIN FE                        /00000701/ [Concomitant]
     Route: 065
  20. PEPPERMINT OIL [Concomitant]
     Active Substance: PEPPERMINT OIL
     Route: 065
  21. LAVENDER OIL [Concomitant]
     Active Substance: LAVENDER OIL
     Route: 065

REACTIONS (1)
  - Migraine [Unknown]
